APPROVED DRUG PRODUCT: BETHANECHOL CHLORIDE
Active Ingredient: BETHANECHOL CHLORIDE
Strength: 10MG
Dosage Form/Route: TABLET;ORAL
Application: A091256 | Product #002 | TE Code: AA
Applicant: HERITAGE PHARMA LABS INC
Approved: May 4, 2010 | RLD: No | RS: No | Type: RX